FAERS Safety Report 9011519 (Version 1)
Quarter: 2013Q1

REPORT INFORMATION
  Report Type: Report from Study
  Country: AU (occurrence: AU)
  Receive Date: 20130108
  Receipt Date: 20130108
  Transmission Date: 20140127
  Serious: Yes (Hospitalization, Disabling, Other)
  Sender: FDA-Public Use
  Company Number: AU-JNJFOC-20121202803

PATIENT
  Age: 0 Year
  Sex: Male
  Weight: 3.12 kg

DRUGS (7)
  1. HALDOL [Suspect]
     Indication: FOETAL EXPOSURE DURING PREGNANCY
     Dosage: 0.5-2 MG DAILY. FROM 8/40 WEEKS TO 12/40 WEEKS FOR 4 WEEKS
     Route: 064
  2. LITHIUM [Suspect]
     Indication: FOETAL EXPOSURE DURING PREGNANCY
     Dosage: 26/40 WEEKS TILL 24 HOURS PRE-BIRTH, EXPOSURE TIME 10/40 WEEKS
     Route: 064
  3. HUMALOG [Suspect]
     Indication: FOETAL EXPOSURE DURING PREGNANCY
     Dosage: 18/40 WEEKS TILL BIRTH
     Route: 064
  4. UNSPECIFIED INGREDIENT [Suspect]
     Indication: FOETAL EXPOSURE DURING PREGNANCY
     Dosage: 1 ST TRIMESTER TILL BIRTH EXPOSURE 38/40 WEEKS
     Route: 064
  5. QUETIAPINE [Suspect]
     Indication: FOETAL EXPOSURE DURING PREGNANCY
     Dosage: 50-100 MG PRE-PREGNANCY - ONGOING, EXPOSURE TIME 38/40 WEEKS
     Route: 064
  6. CHLORPROMAZINE [Suspect]
     Indication: FOETAL EXPOSURE DURING PREGNANCY
     Dosage: UPTO 28/40 WEEKS
     Route: 064
  7. ANAESTHETIC (UNSPECIFIED) [Suspect]
     Indication: FOETAL EXPOSURE DURING PREGNANCY
     Route: 064

REACTIONS (4)
  - Drug withdrawal syndrome neonatal [Recovered/Resolved]
  - Blood glucose decreased [Recovered/Resolved]
  - Cardiac murmur [Recovering/Resolving]
  - Maternal drugs affecting foetus [None]
